FAERS Safety Report 14328515 (Version 1)
Quarter: 2017Q4

REPORT INFORMATION
  Report Type: Spontaneous
  Country: US (occurrence: US)
  Receive Date: 20171227
  Receipt Date: 20171227
  Transmission Date: 20180321
  Serious: Yes (Hospitalization, Other)
  Sender: FDA-Public Use
  Company Number: US-PFIZER INC-2017544705

PATIENT
  Age: 72 Year
  Sex: Male
  Weight: 82.9 kg

DRUGS (9)
  1. TRAMADOL. [Concomitant]
     Active Substance: TRAMADOL
     Indication: PAIN
     Dosage: 50MG TABLET EVERY 6 HOURS AS NEEDED
  2. FENOFIBRATE. [Concomitant]
     Active Substance: FENOFIBRATE
     Indication: HYPERTRIGLYCERIDAEMIA
     Dosage: 67MG TABLET ONCE A DAY BY MOUTH
     Route: 048
  3. GLYBURIDE. [Concomitant]
     Active Substance: GLYBURIDE
     Indication: TYPE 2 DIABETES MELLITUS
     Dosage: 2.5MG TABLET TWICE A DAY BY MOUTH
     Route: 048
  4. LOSARTAN. [Concomitant]
     Active Substance: LOSARTAN
     Indication: HYPERTENSION
     Dosage: 50MG TABLET ONCE A DAY BY MOUTH
     Route: 048
  5. CIPRO [Concomitant]
     Active Substance: CIPROFLOXACIN HYDROCHLORIDE
     Indication: PROPHYLAXIS
     Dosage: 5000MG TABLET TWICE A DAY BY MOUTH
     Route: 048
     Dates: start: 20171110
  6. IDARUBICIN [Concomitant]
     Active Substance: IDARUBICIN
     Indication: ACUTE MYELOID LEUKAEMIA
     Dosage: ON CHEMO ON AND OFF, IT IS A CYCLE
     Route: 042
  7. VFEND [Suspect]
     Active Substance: VORICONAZOLE
     Indication: FUNGAL SKIN INFECTION
     Dosage: 300 MG, 2X/DAY, 50MG 6 TABLETS TWICE A DAY BY MOUTH
     Route: 048
     Dates: start: 201711
  8. CYTOSAR [Concomitant]
     Active Substance: CYTARABINE
     Indication: ACUTE MYELOID LEUKAEMIA
     Dosage: ON CHEMO ON AND OFF, IT IS A CYCLE
     Route: 042
  9. ACYCLOVIR. [Concomitant]
     Active Substance: ACYCLOVIR
     Indication: PROPHYLAXIS
     Dosage: 400MG TABLET TWICE A DAY BY MOUTH
     Route: 048
     Dates: start: 20171019

REACTIONS (1)
  - Fusarium infection [Not Recovered/Not Resolved]
